FAERS Safety Report 25728294 (Version 1)
Quarter: 2025Q3

REPORT INFORMATION
  Report Type: Spontaneous
  Country: EU (occurrence: EU)
  Receive Date: 20250826
  Receipt Date: 20250826
  Transmission Date: 20251020
  Serious: Yes (Other)
  Sender: NOVARTIS
  Company Number: EU-002147023-NVSC2025PL131022

PATIENT
  Age: 41 Year
  Sex: Female

DRUGS (1)
  1. SECUKINUMAB [Suspect]
     Active Substance: SECUKINUMAB
     Indication: Ankylosing spondylitis
     Route: 065
     Dates: start: 202101

REACTIONS (5)
  - Breast mass [Unknown]
  - Breast inflammation [Unknown]
  - Breast pain [Unknown]
  - Skin warm [Unknown]
  - Erythema [Unknown]

NARRATIVE: CASE EVENT DATE: 20211101
